FAERS Safety Report 10551058 (Version 1)
Quarter: 2014Q4

REPORT INFORMATION
  Report Type: Spontaneous
  Country: US (occurrence: None)
  Receive Date: 20141028
  Receipt Date: 20141028
  Transmission Date: 20150529
  Serious: No
  Sender: FDA-Public Use
  Company Number: None

PATIENT
  Age: 40 Year
  Sex: Male
  Weight: 88.45 kg

DRUGS (1)
  1. CHANTIX [Suspect]
     Active Substance: VARENICLINE TARTRATE
     Indication: SMOKING CESSATION THERAPY
     Dosage: 3-4 WEEKS 2 PILLS A DAY TWICE DAILY TAKEN BY MOUTH
     Route: 048

REACTIONS (5)
  - Irritability [None]
  - Agitation [None]
  - Anxiety [None]
  - Frustration [None]
  - Anger [None]

NARRATIVE: CASE EVENT DATE: 20121019
